FAERS Safety Report 10035388 (Version 1)
Quarter: 2014Q1

REPORT INFORMATION
  Report Type: Spontaneous
  Country: US (occurrence: None)
  Receive Date: 20140306
  Receipt Date: 20140306
  Transmission Date: 20141002
  Serious: Yes (Other)
  Sender: FDA-Public Use
  Company Number: 163-21880-13011274

PATIENT
  Sex: Female

DRUGS (7)
  1. REVLIMID (LENALIDOMIDE) (5 MILLIGRAM, CAPSULES) [Suspect]
     Indication: MYELODYSPLASTIC SYNDROME
     Dates: start: 201004
  2. BENADRYL (CLONALIN) [Concomitant]
  3. DANAZOL [Concomitant]
  4. DEXAMETHASONE [Concomitant]
  5. METOPROLOL TARTRATE [Concomitant]
  6. PREDNISONE [Concomitant]
  7. TEMAZEPAM [Concomitant]

REACTIONS (4)
  - Hypersensitivity [None]
  - Rash [None]
  - Erythema [None]
  - Pruritus [None]
